FAERS Safety Report 9818364 (Version 1)
Quarter: 2014Q1

REPORT INFORMATION
  Report Type: Spontaneous
  Country: US (occurrence: US)
  Receive Date: 20140115
  Receipt Date: 20140115
  Transmission Date: 20141002
  Serious: No
  Sender: FDA-Public Use
  Company Number: US-PFIZER INC-2014006950

PATIENT
  Sex: Female

DRUGS (1)
  1. VENLAFAXINE HCL [Suspect]
     Dosage: UNK

REACTIONS (5)
  - Fluid retention [Unknown]
  - Abnormal dreams [Unknown]
  - Constipation [Unknown]
  - Dry mouth [Unknown]
  - Weight increased [Unknown]
